FAERS Safety Report 17974497 (Version 1)
Quarter: 2020Q3

REPORT INFORMATION
  Report Type: Spontaneous
  Country: US (occurrence: US)
  Receive Date: 20200702
  Receipt Date: 20200702
  Transmission Date: 20201103
  Serious: No
  Sender: FDA-Public Use
  Company Number: US-PFIZER INC-2020253708

PATIENT
  Age: 68 Year
  Sex: Female
  Weight: 68.04 kg

DRUGS (3)
  1. INTRAROSA [Suspect]
     Active Substance: PRASTERONE
     Indication: SEXUAL DYSFUNCTION
     Dosage: 6.5 MG, 1X/DAY (6.5MG/INSERT, INSERTED VAGINALLY ONCE DAILY AT BEDTIME)
     Route: 067
     Dates: start: 202006, end: 202006
  2. CRESTOR [Concomitant]
     Active Substance: ROSUVASTATIN CALCIUM
     Indication: BLOOD CHOLESTEROL
     Dosage: 5 MG, 1X/DAY (5MG, 1 TINY PILL BY MOUTH DAILY)
     Route: 048
  3. SPIRONOLACTONE. [Suspect]
     Active Substance: SPIRONOLACTONE
     Indication: ALOPECIA
     Dosage: 100 MG, 1X/DAY (1 TABLET BY MOUTH DAILY)

REACTIONS (5)
  - Drug effective for unapproved indication [Unknown]
  - Pelvic pain [Unknown]
  - Product use in unapproved indication [Unknown]
  - Muscle spasms [Unknown]
  - Off label use [Unknown]

NARRATIVE: CASE EVENT DATE: 202006
